FAERS Safety Report 7682162-6 (Version None)
Quarter: 2011Q3

REPORT INFORMATION
  Report Type: 
  Country: None (occurrence: None)
  Receive Date: 20110815
  Receipt Date: 20110627
  Transmission Date: 20111222
  Serious: No
  Sender: FDA-Public Use
  Company Number: VN-BAYER-2011-053352

PATIENT
  Age: 32 Year
  Sex: Female

DRUGS (1)
  1. MIRENA [Suspect]
     Indication: CONTRACEPTION
     Dosage: UNK
     Route: 015
     Dates: start: 20110616, end: 20110616

REACTIONS (4)
  - SYNCOPE [None]
  - FATIGUE [None]
  - ABDOMINAL PAIN LOWER [None]
  - HYPOTENSION [None]
